FAERS Safety Report 7419053-1 (Version None)
Quarter: 2011Q2

REPORT INFORMATION
  Report Type: 
  Country: None (occurrence: None)
  Receive Date: 20110415
  Receipt Date: 20110404
  Transmission Date: 20111010
  Serious: Yes (Hospitalization)
  Sender: FDA-Public Use
  Company Number: PHHY2010DE86798

PATIENT
  Sex: Male

DRUGS (1)
  1. STI571/CGP57148B [Suspect]
     Indication: CHRONIC MYELOID LEUKAEMIA
     Dosage: 400 MG, DAILY
     Route: 048
     Dates: start: 20090513, end: 20100201

REACTIONS (12)
  - SKIN TOXICITY [None]
  - SKIN EXFOLIATION [None]
  - POLYNEUROPATHY [None]
  - ELECTROCARDIOGRAM ST SEGMENT ELEVATION [None]
  - CANDIDIASIS [None]
  - C-REACTIVE PROTEIN INCREASED [None]
  - BLOOD UREA INCREASED [None]
  - HYPERKERATOSIS [None]
  - XEROSIS [None]
  - FULL BLOOD COUNT DECREASED [None]
  - PALMAR-PLANTAR ERYTHRODYSAESTHESIA SYNDROME [None]
  - SKIN FISSURES [None]
